FAERS Safety Report 8317595-8 (Version None)
Quarter: 2012Q2

REPORT INFORMATION
  Report Type: 
  Country: None (occurrence: None)
  Receive Date: 20120427
  Receipt Date: 20110524
  Transmission Date: 20120825
  Serious: No
  Sender: FDA-Public Use
  Company Number: US-GLAXOSMITHKLINE-A0929941A

PATIENT
  Age: 63 Year
  Sex: Female

DRUGS (2)
  1. VALTREX [Suspect]
     Indication: PRODUCT USED FOR UNKNOWN INDICATION
     Dosage: 500MG UNKNOWN
     Route: 065
     Dates: start: 20100101
  2. ZOFRAN [Suspect]
     Indication: PRODUCT USED FOR UNKNOWN INDICATION
     Dosage: 8MG UNKNOWN
     Route: 065
     Dates: start: 20100101

REACTIONS (2)
  - MALAISE [None]
  - TRANSPLANT [None]
